FAERS Safety Report 25469419 (Version 4)
Quarter: 2025Q3

REPORT INFORMATION
  Report Type: Spontaneous
  Country: GB (occurrence: GB)
  Receive Date: 20250623
  Receipt Date: 20250812
  Transmission Date: 20251020
  Serious: Yes (Other)
  Sender: MYLAN
  Company Number: GB-MYLANLABS-2024M1074230

PATIENT
  Sex: Female

DRUGS (2)
  1. CLOZARIL [Suspect]
     Active Substance: CLOZAPINE
     Indication: Product used for unknown indication
  2. CLOZAPINE [Suspect]
     Active Substance: CLOZAPINE
     Indication: Schizophrenia

REACTIONS (8)
  - Differential white blood cell count abnormal [Unknown]
  - Thrombocytosis [Not Recovered/Not Resolved]
  - Leukocytosis [Not Recovered/Not Resolved]
  - Monocytosis [Unknown]
  - Lymphocyte morphology abnormal [Unknown]
  - Neutrophil morphology abnormal [Unknown]
  - Polycythaemia [Unknown]
  - Neutrophilia [Unknown]

NARRATIVE: CASE EVENT DATE: 20250617
